FAERS Safety Report 8106939-8 (Version None)
Quarter: 2011Q4

REPORT INFORMATION
  Report Type: 
  Country: None (occurrence: None)
  Receive Date: 20111227
  Receipt Date: 20111110
  Transmission Date: 20120403
  Serious: No
  Sender: FDA-Public Use
  Company Number: PHEH2011US009377

PATIENT
  Age: 62 Year
  Sex: Female
  Weight: 52.2 kg

DRUGS (3)
  1. GILENYA [Suspect]
     Indication: MULTIPLE SCLEROSIS
     Dosage: 0.5 MG, QD, ORAL
     Route: 048
     Dates: start: 20110504, end: 20110801
  2. BONIVA [Concomitant]
  3. ZOLPIIDEM (ZOLPIDEM) [Concomitant]

REACTIONS (3)
  - DECREASED APPETITE [None]
  - FACIAL PAIN [None]
  - WEIGHT DECREASED [None]
